FAERS Safety Report 8225571 (Version 3)
Quarter: 2012Q4

REPORT INFORMATION
  Report Type: 
  Country: DE (occurrence: DE)
  Receive Date: 20111103
  Receipt Date: 20121017
  Transmission Date: 20130627
  Serious: Yes (Other)
  Sender: FDA-Public Use
  Company Number: DE-PFIZER INC-2011262055

PATIENT
  Age: 30 Year
  Sex: Male

DRUGS (2)
  1. REVATIO [Suspect]
     Indication: PULMONARY HYPERTENSION
     Dosage: 80 mg, 3x/day
  2. TRACLEER [Concomitant]
     Indication: PULMONARY HYPERTENSION

REACTIONS (4)
  - Renal function test abnormal [Unknown]
  - Cardiac disorder [Unknown]
  - Liver function test abnormal [Unknown]
  - Drug effect decreased [Unknown]
